FAERS Safety Report 4762628-9 (Version None)
Quarter: 2005Q3

REPORT INFORMATION
  Report Type: 
  Country: None (occurrence: None)
  Receive Date: 20050907
  Receipt Date: 20050901
  Transmission Date: 20060218
  Serious: Yes (Other)
  Sender: FDA-Public Use
  Company Number: GB-GLAXOSMITHKLINE-B0392437A

PATIENT

DRUGS (1)
  1. ROPINIROLE HCL [Suspect]
     Route: 048

REACTIONS (1)
  - VENTRICULAR FIBRILLATION [None]
